FAERS Safety Report 4377229-4 (Version None)
Quarter: 2004Q2

REPORT INFORMATION
  Report Type: 
  Country: None (occurrence: None)
  Receive Date: 20040609
  Receipt Date: 20040323
  Transmission Date: 20050107
  Serious: No
  Sender: FDA-Public Use
  Company Number: 2004206269US

PATIENT
  Age: 66 Year
  Sex: Female

DRUGS (3)
  1. BEXTRA [Suspect]
     Indication: ARTHRITIS
     Dosage: 10 MG, QD, UNK
     Route: 065
     Dates: start: 20040317, end: 20040323
  2. SYNTHROID [Concomitant]
  3. ZYRTEC [Concomitant]

REACTIONS (2)
  - ILL-DEFINED DISORDER [None]
  - NERVOUSNESS [None]
